FAERS Safety Report 17677605 (Version 1)
Quarter: 2020Q2

REPORT INFORMATION
  Report Type: Report from Study
  Country: US (occurrence: US)
  Receive Date: 20200416
  Receipt Date: 20200416
  Transmission Date: 20200714
  Serious: No
  Sender: FDA-Public Use
  Company Number: US-AGIOS-2004US01808

PATIENT

DRUGS (1)
  1. TIBSOVO [Suspect]
     Active Substance: IVOSIDENIB
     Indication: MYELODYSPLASTIC SYNDROME
     Dosage: 250 MILLIGRAM, QD
     Dates: start: 20200211, end: 20200403

REACTIONS (2)
  - Platelet count decreased [Unknown]
  - Off label use [Recovered/Resolved]

NARRATIVE: CASE EVENT DATE: 20200211
